FAERS Safety Report 8469787-5 (Version None)
Quarter: 2012Q2

REPORT INFORMATION
  Report Type: 
  Country: None (occurrence: None)
  Receive Date: 20120626
  Receipt Date: 20120613
  Transmission Date: 20120825
  Serious: Yes (Hospitalization)
  Sender: FDA-Public Use
  Company Number: DE-ELI_LILLY_AND_COMPANY-DE201206004154

PATIENT
  Age: 42 Year
  Sex: Female
  Weight: 50 kg

DRUGS (7)
  1. VIVINOX [Concomitant]
     Dosage: 250 MG, SINGLE
     Route: 048
  2. FEXOFENADINE [Concomitant]
     Dosage: UNK, UNK
     Route: 048
  3. VALIUM [Concomitant]
     Dosage: UNK, UNK
  4. MAGNESIUM SULFATE [Concomitant]
     Dosage: UNK, UNK
     Route: 048
  5. LYRICA [Concomitant]
     Dosage: UNK, UNK
     Route: 048
  6. CYMBALTA [Suspect]
     Dosage: UNK, UNK
     Route: 048
  7. ALCOHOL [Concomitant]

REACTIONS (3)
  - GASTROINTESTINAL SOUNDS ABNORMAL [None]
  - COMA [None]
  - SOMNOLENCE [None]
